FAERS Safety Report 9221665 (Version 1)
Quarter: 2013Q2

REPORT INFORMATION
  Report Type: Spontaneous
  Country: NL (occurrence: None)
  Receive Date: 20130408
  Receipt Date: 20130408
  Transmission Date: 20140414
  Serious: Yes (Other)
  Sender: FDA-Public Use
  Company Number: 2013-000767

PATIENT
  Age: 16 Year
  Sex: Female
  Weight: 60 kg

DRUGS (1)
  1. EMSELEX [Suspect]
     Indication: HYPERTONIC BLADDER
     Route: 048
     Dates: start: 20121114, end: 20130116

REACTIONS (1)
  - Gamma-glutamyltransferase increased [None]
